FAERS Safety Report 19157692 (Version 3)
Quarter: 2021Q3

REPORT INFORMATION
  Report Type: Spontaneous
  Country: US (occurrence: US)
  Receive Date: 20210420
  Receipt Date: 20210722
  Transmission Date: 20211014
  Serious: Yes (Other)
  Sender: FDA-Public Use
  Company Number: US-SA-2021SA128561

PATIENT
  Age: 38 Year
  Sex: Female

DRUGS (10)
  1. DEPLIN [CALCIUM LEVOMEFOLATE] [Concomitant]
  2. DUPIXENT [Suspect]
     Active Substance: DUPILUMAB
     Indication: ASTHMA
     Dosage: 300 MG, QOW
     Route: 058
     Dates: start: 20201007
  3. CEFADROXIL. [Concomitant]
     Active Substance: CEFADROXIL
  4. TRIMETHOPRIME [Concomitant]
     Active Substance: TRIMETHOPRIM
  5. ALBUTEROL HFA [Concomitant]
     Active Substance: ALBUTEROL SULFATE
  6. BUDESONIDA [Concomitant]
     Active Substance: BUDESONIDE
  7. METOPROLOLSUCCINAAT [Concomitant]
     Active Substance: METOPROLOL SUCCINATE
  8. CEPHALEXINE [Concomitant]
     Active Substance: CEPHALEXIN
  9. VALPROIC ACID. [Concomitant]
     Active Substance: VALPROIC ACID
  10. DIVALPROEX [Concomitant]
     Active Substance: DIVALPROEX SODIUM

REACTIONS (5)
  - Kidney infection [Unknown]
  - Therapeutic response decreased [Unknown]
  - Eczema [Unknown]
  - Asthma [Unknown]
  - Pruritus [Unknown]

NARRATIVE: CASE EVENT DATE: 20210401
